FAERS Safety Report 16625334 (Version 2)
Quarter: 2019Q3

REPORT INFORMATION
  Report Type: Report from Study
  Country: US (occurrence: US)
  Receive Date: 20190724
  Receipt Date: 20190726
  Transmission Date: 20191004
  Serious: Yes (Hospitalization)
  Sender: FDA-Public Use
  Company Number: US-ASTRAZENECA-2019SF04323

PATIENT
  Age: 80 Year
  Sex: Male

DRUGS (2)
  1. LUMOXITI [Suspect]
     Active Substance: MOXETUMOMAB PASUDOTOX-TDFK
     Indication: HAIRY CELL LEUKAEMIA
     Dosage: REDUCED DOSE
     Route: 041
     Dates: start: 201903
  2. LUMOXITI [Suspect]
     Active Substance: MOXETUMOMAB PASUDOTOX-TDFK
     Indication: HAIRY CELL LEUKAEMIA
     Dosage: 0.04 MG/KG, ONE CYCLE
     Route: 041

REACTIONS (2)
  - Capillary leak syndrome [Recovered/Resolved]
  - Oedema [Unknown]
